FAERS Safety Report 5273205-8 (Version None)
Quarter: 2007Q1

REPORT INFORMATION
  Report Type: 
  Country: None (occurrence: None)
  Receive Date: 20070319
  Receipt Date: 20070301
  Transmission Date: 20070707
  Serious: Yes (Disabling, Other)
  Sender: FDA-Public Use
  Company Number: TRP_0916_2007

PATIENT
  Age: 46 Year
  Sex: Female

DRUGS (2)
  1. RIBASPHERE [Suspect]
     Dosage: DF UNK PO
     Route: 048
     Dates: end: 20061001
  2. PEGASYS [Suspect]
     Dosage: DF UNK SC
     Route: 058
     Dates: start: 20060701, end: 20061001

REACTIONS (6)
  - ANAEMIA [None]
  - DISTURBANCE IN ATTENTION [None]
  - DIZZINESS [None]
  - FATIGUE [None]
  - VISION BLURRED [None]
  - VISUAL DISTURBANCE [None]
